FAERS Safety Report 24850636 (Version 2)
Quarter: 2025Q2

REPORT INFORMATION
  Report Type: Spontaneous
  Country: CN (occurrence: CN)
  Receive Date: 20250116
  Receipt Date: 20250422
  Transmission Date: 20250717
  Serious: No
  Sender: MERCK SHARP & DOHME LLC
  Company Number: US-009507513-2412USA008347

PATIENT
  Age: 50 Year
  Sex: Male

DRUGS (3)
  1. IMIPENEM AND CILASTATIN [Suspect]
     Active Substance: CILASTATIN SODIUM\IMIPENEM
     Indication: Abdominal infection
     Dosage: DOSE DESCRIPTION : 1 GRAM, QD?DAILY DOSE : 1 GRAM
     Route: 041
     Dates: start: 202404
  2. FLUCONAZOLE [Concomitant]
     Active Substance: FLUCONAZOLE
     Indication: Abdominal infection
     Dosage: DOSE DESCRIPTION : 0.2 GRAM, QD?DAILY DOSE : 0.2 GRAM
     Route: 041
     Dates: start: 202404
  3. ESOMEPRAZOLE [Concomitant]
     Active Substance: ESOMEPRAZOLE
     Indication: Abdominal infection
     Dosage: DOSE DESCRIPTION : 0.04 GRAM, QD?DAILY DOSE : 0.04 GRAM
     Route: 041
     Dates: start: 202404

REACTIONS (1)
  - Product use in unapproved indication [Unknown]

NARRATIVE: CASE EVENT DATE: 20240401
